FAERS Safety Report 11926245 (Version 1)
Quarter: 2016Q1

REPORT INFORMATION
  Report Type: Spontaneous
  Country: JP (occurrence: JP)
  Receive Date: 20160119
  Receipt Date: 20160119
  Transmission Date: 20160526
  Serious: Yes (Death, Hospitalization)
  Sender: FDA-Public Use
  Company Number: JP-ACCORD-037089

PATIENT
  Age: 77 Year
  Sex: Female

DRUGS (2)
  1. CYTARABINE/CYTARABINE HYDROCHLORIDE/CYTARABINE OCFOSFATE [Suspect]
     Active Substance: CYTARABINE
     Indication: ACUTE MYELOID LEUKAEMIA
     Route: 037
  2. METHOTREXATE [Suspect]
     Active Substance: METHOTREXATE
     Indication: ACUTE MYELOID LEUKAEMIA
     Route: 037

REACTIONS (9)
  - Pneumonia [Fatal]
  - Pleural effusion [None]
  - Neutropenia [Unknown]
  - Visual impairment [Unknown]
  - Cerebral infarction [None]
  - Hemiparesis [Unknown]
  - Thrombocytopenia [Unknown]
  - Aortitis [None]
  - Mucormycosis [Unknown]
